FAERS Safety Report 9097198 (Version 2)
Quarter: 2013Q1

REPORT INFORMATION
  Report Type: Spontaneous
  Country: US (occurrence: US)
  Receive Date: 20130212
  Receipt Date: 20130315
  Transmission Date: 20140127
  Serious: Yes (Life-Threatening, Other)
  Sender: FDA-Public Use
  Company Number: US-CELGENEUS-163-21880-13020122

PATIENT
  Age: 77 Year
  Sex: Female

DRUGS (7)
  1. REVLIMID [Suspect]
     Indication: MYELODYSPLASTIC SYNDROME
     Dosage: 5 MILLIGRAM
     Route: 048
     Dates: start: 20120725, end: 20120914
  2. BLOOD TRANSFUSION [Concomitant]
     Indication: PRODUCT USED FOR UNKNOWN INDICATION
     Route: 041
  3. DIAVAN [Concomitant]
     Indication: HYPERTENSION
     Dosage: 160 MILLIGRAM
     Route: 065
     Dates: start: 20091222
  4. VITAMIN B12 [Concomitant]
     Indication: ANAEMIA
     Dosage: 1000
     Route: 065
     Dates: start: 201109
  5. IMMODIUM [Concomitant]
     Indication: DIARRHOEA
     Route: 065
  6. KLOR CON [Concomitant]
     Indication: HYPERTENSION
     Dosage: 60 MILLIEQUIVALENTS
     Route: 048
     Dates: start: 20091222
  7. FLEXERIL [Concomitant]
     Indication: MUSCLE SPASMS
     Dosage: 5
     Route: 065

REACTIONS (3)
  - Drug ineffective [Not Recovered/Not Resolved]
  - Urinary tract infection [Recovered/Resolved]
  - Fatigue [Recovered/Resolved]
